FAERS Safety Report 26157902 (Version 1)
Quarter: 2025Q4

REPORT INFORMATION
  Report Type: Spontaneous
  Country: US (occurrence: None)
  Receive Date: 20251214
  Receipt Date: 20251214
  Transmission Date: 20260118
  Serious: Yes (Other)
  Sender: FDA-CTU
  Company Number: None

PATIENT
  Age: 75 Year
  Sex: Male
  Weight: 74.25 kg

DRUGS (7)
  1. SUZETRIGINE [Suspect]
     Active Substance: SUZETRIGINE
     Dosage: OTHER QUANTITY : 4 TABLET(S);?FREQUENCY : EVERY 12 HOURS;
     Route: 048
     Dates: start: 20251211, end: 20251213
  2. insulin pump/Novolog [Concomitant]
  3. METOPROLOL [Concomitant]
     Active Substance: METOPROLOL
  4. AMLODIPINE [Concomitant]
     Active Substance: AMLODIPINE BESYLATE
  5. GABAPENTIN [Concomitant]
     Active Substance: GABAPENTIN
  6. VITAMIN D [Concomitant]
     Active Substance: VITAMIN D NOS
  7. bicarbonate of soda [Concomitant]

REACTIONS (2)
  - Depression [None]
  - Anger [None]

NARRATIVE: CASE EVENT DATE: 20251213
